FAERS Safety Report 6902071-7 (Version None)
Quarter: 2010Q3

REPORT INFORMATION
  Report Type: 
  Country: None (occurrence: None)
  Receive Date: 20100803
  Receipt Date: 20080422
  Transmission Date: 20110219
  Serious: No
  Sender: FDA-Public Use
  Company Number: US-PFIZER INC-2008036709

PATIENT
  Sex: Female

DRUGS (1)
  1. LYRICA [Suspect]
     Dates: start: 20080418

REACTIONS (6)
  - AGITATION [None]
  - FEELING ABNORMAL [None]
  - HUNGER [None]
  - IRRITABILITY [None]
  - PALPITATIONS [None]
  - TREMOR [None]
